FAERS Safety Report 19375382 (Version 2)
Quarter: 2021Q2

REPORT INFORMATION
  Report Type: Spontaneous
  Country: GB (occurrence: GB)
  Receive Date: 20210604
  Receipt Date: 20210621
  Transmission Date: 20210717
  Serious: Yes (Death)
  Sender: FDA-Public Use
  Company Number: GB-PFIZER INC-2021611158

PATIENT
  Age: 76 Year
  Sex: Male

DRUGS (3)
  1. DEXAMETHASONE SODIUM PHOSPHATE. [Suspect]
     Active Substance: DEXAMETHASONE SODIUM PHOSPHATE
     Dosage: UNK
  2. AMBISOME [Suspect]
     Active Substance: AMPHOTERICIN B
     Dosage: UNK
  3. VORICONAZOLE. [Suspect]
     Active Substance: VORICONAZOLE
     Dosage: UNK

REACTIONS (3)
  - Thrombosis [Fatal]
  - Aspergillus infection [Fatal]
  - COVID-19 [Fatal]
